FAERS Safety Report 8546697-6 (Version None)
Quarter: 2012Q3

REPORT INFORMATION
  Report Type: 
  Country: None (occurrence: None)
  Receive Date: 20120727
  Receipt Date: 20120131
  Transmission Date: 20120928
  Serious: No
  Sender: FDA-Public Use
  Company Number: US-ASTRAZENECA-2012SE05812

PATIENT
  Age: 32 Year
  Sex: Female

DRUGS (6)
  1. SEROQUEL XR [Suspect]
     Route: 048
     Dates: start: 20111228
  2. BUSPAR [Concomitant]
  3. FLUOXETINE HCL [Concomitant]
  4. DEPAKOTE [Concomitant]
  5. SEROQUEL XR [Suspect]
     Indication: BIPOLAR I DISORDER
     Route: 048
     Dates: end: 20111228
  6. TRAZODONE HCL [Concomitant]
     Dosage: 150

REACTIONS (5)
  - POST-TRAUMATIC STRESS DISORDER [None]
  - SUBSTANCE ABUSE [None]
  - RASH [None]
  - GENERALISED ANXIETY DISORDER [None]
  - PANIC DISORDER [None]
